FAERS Safety Report 9078952 (Version 1)
Quarter: 2013Q1

REPORT INFORMATION
  Report Type: Spontaneous
  Country: US (occurrence: US)
  Receive Date: 20130130
  Receipt Date: 20130130
  Transmission Date: 20140127
  Serious: No
  Sender: FDA-Public Use
  Company Number: US-009507513-1301USA008821

PATIENT
  Sex: Male

DRUGS (2)
  1. DULERA [Suspect]
     Dosage: 200 MCG/5 MCG - TWO PUFFS TWICE A DAY
     Route: 055
     Dates: start: 201212
  2. DULERA [Suspect]
     Dosage: 200 MCG/5 MCG - TWO PUFFS TWICE A DAY
     Route: 055
     Dates: start: 201212

REACTIONS (5)
  - Drug ineffective [Unknown]
  - Product odour abnormal [Unknown]
  - Product taste abnormal [Unknown]
  - Drug dose omission [Unknown]
  - Product quality issue [Unknown]
